FAERS Safety Report 9547872 (Version 1)
Quarter: 2013Q2

REPORT INFORMATION
  Report Type: Spontaneous
  Country: US (occurrence: None)
  Receive Date: 20130628
  Receipt Date: 20130628
  Transmission Date: 20140414
  Serious: Yes (Other)
  Sender: FDA-Public Use
  Company Number: 394741

PATIENT
  Sex: 0

DRUGS (3)
  1. MEPIVACAINE HYDROCHLORIDE [Suspect]
     Indication: NERVE BLOCK
     Dosage: 10 CC ONCE INTRASCLANENE
     Dates: start: 20090925, end: 20090925
  2. ROPIVACAINE [Suspect]
     Indication: NERVE BLOCK
     Dosage: 10 CC ONCE INRASCALENE
     Dates: start: 20090925, end: 20090925
  3. DEXAMETHASONE [Suspect]
     Indication: NERVE BLOCK
     Dosage: INTRASCALENE
     Dates: start: 20090925, end: 20090925

REACTIONS (1)
  - Convulsion [None]
